FAERS Safety Report 4497011-7 (Version None)
Quarter: 2004Q3

REPORT INFORMATION
  Report Type: 
  Country: None (occurrence: None)
  Receive Date: 20040928
  Receipt Date: 20040803
  Transmission Date: 20050211
  Serious: No
  Sender: FDA-Public Use
  Company Number: 04P-163-0268938-00

PATIENT
  Age: 78 Year
  Sex: Female
  Weight: 55.3388 kg

DRUGS (14)
  1. HUMIRA [Suspect]
     Indication: RHEUMATOID ARTHRITIS
     Dosage: 40 MG, 1 IN 2 WK, SUBCUTANEOUS
     Route: 058
     Dates: start: 20040425, end: 20040509
  2. NEURONTIN [Concomitant]
  3. LEFLUNOMIDE [Concomitant]
  4. METHADONE [Concomitant]
  5. CALCIUM [Concomitant]
  6. ATORVASTATIN CALCIUM [Concomitant]
  7. WARFARIN SODIUM [Concomitant]
  8. AMLODIPINE BESYLATE [Concomitant]
  9. PREDNISONE [Concomitant]
  10. PAROXETINE HYDROCHLORIDE [Concomitant]
  11. ESTROGENS CONJUGATED [Concomitant]
  12. MULTI-VITAMINS [Concomitant]
  13. OXYCOCET [Concomitant]
  14. ZOLPIDEM TARTRATE [Concomitant]

REACTIONS (2)
  - CONDITION AGGRAVATED [None]
  - NIGHT SWEATS [None]
